FAERS Safety Report 8954137 (Version 3)
Quarter: 2012Q4

REPORT INFORMATION
  Report Type: 
  Country: US (occurrence: US)
  Receive Date: 20121207
  Receipt Date: 20121218
  Transmission Date: 20130627
  Serious: Yes (Life-Threatening, Hospitalization)
  Sender: FDA-Public Use
  Company Number: US-MERCK-1211USA011003

PATIENT
  Age: 5 Year
  Sex: Female
  Weight: 21.8 kg

DRUGS (4)
  1. VORINOSTAT [Suspect]
     Indication: BRAIN STEM GLIOMA
     Dosage: 230 mg/m2, qd, (Cycle = 12 weeks)
     Route: 048
     Dates: start: 20121116, end: 20121125
  2. VORINOSTAT [Suspect]
     Dosage: 230 mg/m2, on days 1-5 weekly (Cycle = 6 weeks)
     Route: 048
     Dates: start: 20121008
  3. VORINOSTAT [Suspect]
     Dosage: 230 mg/m2, monday thru friday only
     Route: 048
     Dates: start: 20121203, end: 20121205
  4. THERAPEUTIC RADIOPHARMACEUTICAL (UNSPECIFIED) [Suspect]
     Indication: BRAIN STEM GLIOMA
     Dosage: 180cGy in 30 fractions on days 1-5 each week for total dose 5400 cGy (Cycle = 6 weeks)
     Dates: start: 20121008, end: 20121116

REACTIONS (3)
  - Platelet count decreased [Recovered/Resolved]
  - White blood cell count decreased [Recovered/Resolved]
  - Neutrophil count decreased [Recovered/Resolved]
